FAERS Safety Report 20940316 (Version 1)
Quarter: 2022Q2

REPORT INFORMATION
  Report Type: Spontaneous
  Country: US (occurrence: US)
  Receive Date: 20220609
  Receipt Date: 20220609
  Transmission Date: 20220721
  Serious: No
  Sender: FDA-Public Use
  Company Number: US-RIGEL PHARMACEUTICALS, INC.-2021FOS000605

PATIENT
  Age: 65 Year
  Sex: Female

DRUGS (2)
  1. TAVALISSE [Suspect]
     Active Substance: FOSTAMATINIB
     Indication: Immune thrombocytopenia
     Dosage: 100 MG, BID
     Route: 048
     Dates: start: 20200313
  2. TAVALISSE [Suspect]
     Active Substance: FOSTAMATINIB
     Dosage: 100 MG, BID
     Route: 048
     Dates: start: 20200313

REACTIONS (15)
  - COVID-19 [Recovered/Resolved]
  - Ageusia [Unknown]
  - Anosmia [Unknown]
  - Pyrexia [Recovered/Resolved]
  - Weight decreased [Recovered/Resolved]
  - Cough [Not Recovered/Not Resolved]
  - Abdominal discomfort [Unknown]
  - Platelet count [Unknown]
  - Decreased appetite [Unknown]
  - Intervertebral disc degeneration [Not Recovered/Not Resolved]
  - Intervertebral disc protrusion [Not Recovered/Not Resolved]
  - Asthma [Not Recovered/Not Resolved]
  - Product dose omission issue [Unknown]
  - Fatigue [Not Recovered/Not Resolved]
  - Dyspnoea [Unknown]

NARRATIVE: CASE EVENT DATE: 20210801
